FAERS Safety Report 7559481-7 (Version None)
Quarter: 2011Q2

REPORT INFORMATION
  Report Type: 
  Country: None (occurrence: None)
  Receive Date: 20110613
  Receipt Date: 20110608
  Transmission Date: 20111010
  Serious: Yes (Other)
  Sender: FDA-Public Use
  Company Number: USA/USA/11/0018080

PATIENT
  Age: 69 Year
  Sex: Female

DRUGS (2)
  1. PANTOPRAZOLE SODIUM [Suspect]
     Indication: DYSPEPSIA
     Dosage: 40 MG, 1 IN 1 D, ORAL; 40 MG, 1 IN 1 D, ORAL
     Route: 048
     Dates: start: 20110603
  2. PANTOPRAZOLE SODIUM [Suspect]
     Indication: DYSPEPSIA
     Dosage: 40 MG, 1 IN 1 D, ORAL; 40 MG, 1 IN 1 D, ORAL
     Route: 048
     Dates: start: 20110301, end: 20110422

REACTIONS (6)
  - ASTHENIA [None]
  - BLOOD PRESSURE INCREASED [None]
  - SOMNOLENCE [None]
  - DRUG INEFFECTIVE [None]
  - HEADACHE [None]
  - PRODUCT SUBSTITUTION ISSUE [None]
